FAERS Safety Report 24646972 (Version 1)
Quarter: 2024Q4

REPORT INFORMATION
  Report Type: Spontaneous
  Country: ID (occurrence: ID)
  Receive Date: 20241121
  Receipt Date: 20241121
  Transmission Date: 20250115
  Serious: Yes (Other)
  Sender: RANBAXY
  Company Number: ID-SUN PHARMACEUTICAL INDUSTRIES LTD-2024R1-479818

PATIENT
  Age: 22 Year
  Sex: Male
  Weight: 60 kg

DRUGS (6)
  1. METOCLOPRAMIDE [Suspect]
     Active Substance: METOCLOPRAMIDE
     Indication: Weil^s disease
     Dosage: 10 MILLIGRAM, TID
     Route: 042
  2. CEFTRIAXONE [Suspect]
     Active Substance: CEFTRIAXONE
     Indication: Weil^s disease
     Dosage: 1 GRAM, BID
     Route: 042
  3. CALCIUM GLUCONATE [Suspect]
     Active Substance: CALCIUM GLUCONATE
     Indication: Weil^s disease
     Dosage: 1 GRAM
     Route: 042
  4. DEXTROSE [Suspect]
     Active Substance: DEXTROSE MONOHYDRATE
     Indication: Weil^s disease
     Dosage: 40 %
     Route: 065
  5. INSULIN NOS [Suspect]
     Active Substance: INSULIN NOS
     Indication: Weil^s disease
     Dosage: 2 IU FOR SIX TIMES
     Route: 065
  6. SODIUM CHLORIDE [Suspect]
     Active Substance: SODIUM CHLORIDE
     Indication: Weil^s disease
     Dosage: (NACL) 0.9% AT A VOLUME OF 2000 CM3, QID

REACTIONS (1)
  - Hyperkalaemia [Unknown]
